FAERS Safety Report 15714100 (Version 1)
Quarter: 2018Q4

REPORT INFORMATION
  Report Type: Spontaneous
  Country: US (occurrence: US)
  Receive Date: 20181212
  Receipt Date: 20181212
  Transmission Date: 20190205
  Serious: No
  Sender: FDA-Public Use
  Company Number: US-AMGEN INC.-USASP2018176272

PATIENT
  Age: 46 Year
  Sex: Female

DRUGS (1)
  1. AIMOVIG [Suspect]
     Active Substance: ERENUMAB-AOOE
     Indication: PRODUCT USED FOR UNKNOWN INDICATION
     Dosage: UNK
     Route: 065
     Dates: start: 2018, end: 20181207

REACTIONS (8)
  - Oligomenorrhoea [Unknown]
  - Myalgia [Unknown]
  - Acne [Unknown]
  - Constipation [Unknown]
  - Fatigue [Unknown]
  - Palpitations [Unknown]
  - Abnormal dreams [Unknown]
  - Weight increased [Unknown]

NARRATIVE: CASE EVENT DATE: 2018
